FAERS Safety Report 8963229 (Version 1)
Quarter: 2012Q4

REPORT INFORMATION
  Report Type: 
  Country: TR (occurrence: TR)
  Receive Date: 20121213
  Receipt Date: 20121213
  Transmission Date: 20130627
  Serious: Yes (Hospitalization, Other)
  Sender: FDA-Public Use
  Company Number: TR-ABBOTT-12P-161-1018373-00

PATIENT
  Age: 69 Year
  Sex: Male

DRUGS (9)
  1. HUMIRA [Suspect]
     Indication: RHEUMATOID ARTHRITIS
     Route: 058
     Dates: start: 201202, end: 20120402
  2. LEFLUNAMIDE [Concomitant]
     Indication: PRODUCT USED FOR UNKNOWN INDICATION
  3. METHYLPREDNISOLONE [Concomitant]
     Indication: PRODUCT USED FOR UNKNOWN INDICATION
  4. HYDROCHLOROQUINE [Concomitant]
     Indication: PRODUCT USED FOR UNKNOWN INDICATION
  5. NSAID^S [Concomitant]
     Indication: PRODUCT USED FOR UNKNOWN INDICATION
  6. METHOTREXATE [Concomitant]
     Indication: PRODUCT USED FOR UNKNOWN INDICATION
     Dates: start: 2010
  7. PIPERACILLIN W/TAZOBACTAM [Concomitant]
     Indication: PRODUCT USED FOR UNKNOWN INDICATION
  8. PREDNOL [Concomitant]
     Indication: PRODUCT USED FOR UNKNOWN INDICATION
  9. MERONEM [Concomitant]
     Indication: PRODUCT USED FOR UNKNOWN INDICATION
     Dates: start: 20120616

REACTIONS (27)
  - Asthenia [Unknown]
  - Pyrexia [Unknown]
  - Diarrhoea [Unknown]
  - Nausea [Unknown]
  - Tuberculosis gastrointestinal [Unknown]
  - Crohn^s disease [Unknown]
  - Metabolic acidosis [Unknown]
  - Peritoneal necrosis [Unknown]
  - Granuloma [Unknown]
  - Blood creatine abnormal [Unknown]
  - C-reactive protein increased [Unknown]
  - Renal failure chronic [Unknown]
  - Diverticulum [Unknown]
  - Inguinal hernia [Unknown]
  - Pleural effusion [Unknown]
  - Serum ferritin abnormal [Unknown]
  - Nodule [Unknown]
  - Gastritis [Unknown]
  - Anaemia [Unknown]
  - Hiatus hernia [Unknown]
  - Tremor [Unknown]
  - Hypoalbuminaemia [Unknown]
  - General physical health deterioration [Unknown]
  - Hypercalcaemia [Unknown]
  - Bone pain [Unknown]
  - Osteoporosis [Unknown]
  - Myopathy [Unknown]
